FAERS Safety Report 10740355 (Version 1)
Quarter: 2015Q1

REPORT INFORMATION
  Report Type: Spontaneous
  Country: US (occurrence: US)
  Receive Date: 20150127
  Receipt Date: 20150127
  Transmission Date: 20150721
  Serious: No
  Sender: FDA-Public Use
  Company Number: US-BIOGENIDEC-2015BI010231

PATIENT
  Sex: Female

DRUGS (1)
  1. AVONEX [Suspect]
     Active Substance: INTERFERON BETA-1A
     Indication: MULTIPLE SCLEROSIS
     Route: 030
     Dates: start: 20110328

REACTIONS (7)
  - Heart rate abnormal [Unknown]
  - Palpitations [Unknown]
  - Nausea [Unknown]
  - Cardiac disorder [Unknown]
  - Paraesthesia [Unknown]
  - Headache [Unknown]
  - Drug dose omission [Recovered/Resolved]
